FAERS Safety Report 11575448 (Version 2)
Quarter: 2015Q4

REPORT INFORMATION
  Report Type: Spontaneous
  Country: FR (occurrence: FR)
  Receive Date: 20150930
  Receipt Date: 20151211
  Transmission Date: 20160304
  Serious: Yes (Other)
  Sender: FDA-Public Use
  Company Number: FR-NOVOPROD-465314

PATIENT
  Age: 51 Year
  Sex: Female
  Weight: 120 kg

DRUGS (4)
  1. NOVORAPID [Concomitant]
     Active Substance: INSULIN ASPART
     Dosage: 60 IU, QD
     Route: 058
  2. VICTOZA [Suspect]
     Active Substance: LIRAGLUTIDE
     Indication: TYPE 2 DIABETES MELLITUS
     Dosage: 0.6 MG, QD
     Route: 058
     Dates: start: 20150904, end: 20151120
  3. METFORMINE [Concomitant]
     Active Substance: METFORMIN HYDROCHLORIDE
     Dosage: 1.5 G, QD
     Route: 048
  4. LEVEMIR [Concomitant]
     Active Substance: INSULIN DETEMIR
     Dosage: 60 IU, BID
     Route: 058
     Dates: start: 2013

REACTIONS (3)
  - Abdominal pain [Recovering/Resolving]
  - Vomiting [Recovering/Resolving]
  - Palpitations [Unknown]

NARRATIVE: CASE EVENT DATE: 201509
